FAERS Safety Report 9106771 (Version 2)
Quarter: 2013Q1

REPORT INFORMATION
  Report Type: Spontaneous
  Country: FR (occurrence: FR)
  Receive Date: 20130222
  Receipt Date: 20130320
  Transmission Date: 20140127
  Serious: Yes (Hospitalization, Other)
  Sender: FDA-Public Use
  Company Number: FR-UCBSA-073805

PATIENT
  Age: 60 Year
  Sex: Male
  Weight: 75 kg

DRUGS (1)
  1. VIMPAT [Suspect]
     Dosage: 2 UNITS DAILY
     Route: 048
     Dates: end: 20130131

REACTIONS (1)
  - Atrioventricular block second degree [Recovered/Resolved]
